FAERS Safety Report 6615687-2 (Version None)
Quarter: 2010Q1

REPORT INFORMATION
  Report Type: 
  Country: None (occurrence: None)
  Receive Date: 20100305
  Receipt Date: 20100219
  Transmission Date: 20100710
  Serious: Yes (Other)
  Sender: FDA-Public Use
  Company Number: DE-BAYER-201016739GPV

PATIENT

DRUGS (19)
  1. MABCAMPATH [Suspect]
     Indication: PERIPHERAL T-CELL LYMPHOMA UNSPECIFIED
     Dosage: ON DAY 1, FIRST CYCLE (DOSE ESCALATION)
     Route: 042
  2. MABCAMPATH [Suspect]
     Dosage: ON DAY 2, FIRST CYCLE (DOSE ESCALATION)
     Route: 042
  3. MABCAMPATH [Suspect]
     Dosage: ON DAYS 3 AND 4, FIRST CYCLE (DOSE ESCALATION)
     Route: 042
  4. MABCAMPATH [Suspect]
     Dosage: ON DAYS 2 AND 3 OF SECOND AND SUBSEQUENT CYCLES EVERY 21 DAYS
     Route: 042
  5. MABCAMPATH [Suspect]
     Dosage: ON DAY 1 OF SECOND AND SUBSEQUENT CYCLES EVERY 21 DAYS
     Route: 042
  6. FLUDARABINE [Suspect]
     Indication: PERIPHERAL T-CELL LYMPHOMA UNSPECIFIED
     Dosage: ON DAYS 2, 3, AND 4, FIRST CYCLE
  7. FLUDARABINE [Suspect]
     Dosage: ON DAYS 1-3 OF SECOND AND SUBSEQUENT CYCLES EVERY 21 DAYS
  8. CYCLOPHOSPHAMIDE [Suspect]
     Indication: PERIPHERAL T-CELL LYMPHOMA UNSPECIFIED
     Dosage: ON DAY 2 OF SECOND CYCLE AND SUBSEQUENT CYCLES EVERY 21 DAYS
  9. CYCLOPHOSPHAMIDE [Suspect]
     Dosage: ON DAY 3, FIRST CYCLE
  10. DOXORUBICIN HCL [Suspect]
     Indication: PERIPHERAL T-CELL LYMPHOMA UNSPECIFIED
     Dosage: ON DAY 4, FIRST CYCLE
  11. DOXORUBICIN HCL [Suspect]
     Dosage: ON DAY 3 OF SECOND CYCLE AND SUBSEQUENT CYCLES EVERY 21 DAYS
  12. CLEMASTINE FUMARATE [Concomitant]
     Indication: PREMEDICATION
     Dosage: ON DAY 1 OF EACH CYCLE
     Route: 042
  13. ACETAMINOPHEN [Concomitant]
     Indication: PREMEDICATION
     Dosage: ON DAY 1 OF EACH CYCLE
     Route: 048
  14. PREDNISONE [Concomitant]
     Indication: PREMEDICATION
     Dosage: AS USED: 100 MG
     Route: 042
  15. PREDNISONE [Concomitant]
     Dosage: TOTAL DAILY DOSE: 50 MG
     Route: 042
  16. SEROTONIN ANTAGONISTS [Concomitant]
     Indication: PREMEDICATION
     Dosage: ON DAYS 2 AND 3 OF EACH CYCLE
  17. TRIMETHOPRIM + SULFAMETHOXAZOLE [Concomitant]
     Indication: INFECTION PROPHYLAXIS
     Dosage: TOTAL DAILY DOSE: 960 MG
  18. FAMCICLOVIR [Concomitant]
     Indication: INFECTION PROPHYLAXIS
     Dosage: TOTAL DAILY DOSE: 500 MG
  19. GRANULOCYTE COLONY STIMULATING FACTOR [Concomitant]
     Indication: PROPHYLAXIS
     Dosage: FROM DAY 7 OF EACHTREATMENT CYCLE UNTIL NEUTROPHIL RECOVERY TO ANC}1.5 GIGA/L

REACTIONS (1)
  - BRONCHOSPASM [None]
